FAERS Safety Report 19744390 (Version 1)
Quarter: 2021Q3

REPORT INFORMATION
  Report Type: Spontaneous
  Country: US (occurrence: US)
  Receive Date: 20210825
  Receipt Date: 20210825
  Transmission Date: 20211014
  Serious: No
  Sender: FDA-Public Use
  Company Number: US-PERRIGO-21US002534

PATIENT
  Age: 67 Year
  Sex: Female
  Weight: 44.44 kg

DRUGS (3)
  1. EVAMIST [Suspect]
     Active Substance: ESTRADIOL
     Dosage: 3.06 MG, QD
     Route: 062
     Dates: start: 20210211
  2. EVAMIST [Suspect]
     Active Substance: ESTRADIOL
     Indication: HORMONE REPLACEMENT THERAPY
     Dosage: 3.06 MG, QD
     Route: 062
     Dates: end: 20210208
  3. EVAMIST [Suspect]
     Active Substance: ESTRADIOL
     Dosage: UNKNOWN, QD
     Route: 062
     Dates: start: 20210209, end: 20210210

REACTIONS (2)
  - Incorrect dose administered [Recovered/Resolved]
  - Accidental exposure to product [Recovered/Resolved]

NARRATIVE: CASE EVENT DATE: 20210209
